FAERS Safety Report 9344654 (Version 1)
Quarter: 2013Q2

REPORT INFORMATION
  Report Type: Report from Study
  Country: AU (occurrence: AU)
  Receive Date: 20130612
  Receipt Date: 20130612
  Transmission Date: 20140414
  Serious: Yes (Hospitalization)
  Sender: FDA-Public Use
  Company Number: PHHY2011AU54576

PATIENT
  Age: 85 Year
  Sex: Male

DRUGS (5)
  1. EXJADE [Suspect]
     Indication: MYELODYSPLASTIC SYNDROME
     Dosage: 500 MG, UNK
     Dates: start: 20110216
  2. EXJADE [Suspect]
     Dosage: 1250 MG, 2 IN THE MORNING, 1 AT LUNCH TIME AND 2 AT DINNER
     Route: 048
     Dates: start: 20110614
  3. EXJADE [Suspect]
     Dosage: 1500 MG
     Route: 048
  4. EXJADE [Suspect]
     Dosage: 1000 MG
     Route: 048
  5. EXJADE [Suspect]
     Dosage: 1500 MG

REACTIONS (7)
  - Transient ischaemic attack [Recovered/Resolved]
  - Sight disability [Recovered/Resolved]
  - Hypokinesia [Unknown]
  - Asthenia [Unknown]
  - Back pain [Unknown]
  - Diarrhoea [Unknown]
  - Serum ferritin increased [Unknown]
